FAERS Safety Report 5787370-7 (Version None)
Quarter: 2008Q2

REPORT INFORMATION
  Report Type: 
  Country: None (occurrence: None)
  Receive Date: 20080623
  Receipt Date: 20080623
  Transmission Date: 20081010
  Serious: Yes (Hospitalization)
  Sender: FDA-Public Use
  Company Number: None

PATIENT
  Age: 44 Year
  Sex: Male
  Weight: 123.2 kg

DRUGS (22)
  1. ZOSYN [Suspect]
     Indication: ACUTE MYELOID LEUKAEMIA
     Dosage: 4.5 GM Q6H IV BOLUS
     Route: 040
     Dates: start: 20071015, end: 20071212
  2. ZOSYN [Suspect]
     Indication: CATHETER SITE CELLULITIS
     Dosage: 4.5 GM Q6H IV BOLUS
     Route: 040
     Dates: start: 20071015, end: 20071212
  3. ZOSYN [Suspect]
     Indication: NEUTROPENIA
     Dosage: 4.5 GM Q6H IV BOLUS
     Route: 040
     Dates: start: 20071015, end: 20071212
  4. VANCOMYCIN [Suspect]
     Indication: CATHETER SITE CELLULITIS
     Dosage: 2000 MG Q12H IV BOLUS
     Route: 040
     Dates: start: 20071015, end: 20071021
  5. ACYCLOVIR SODIUM [Concomitant]
  6. ALLOPURINOL [Concomitant]
  7. BACLOFEN [Concomitant]
  8. CYTARABINE [Concomitant]
  9. CLINDAMYCIN [Concomitant]
  10. DAUNORUBICIN HCL [Concomitant]
  11. DAPTOMYCIN [Concomitant]
  12. DOXYCYCLINE HCL [Concomitant]
  13. FAMCICLOVIR [Concomitant]
  14. FILGRASTIM [Concomitant]
  15. MEROPENEM [Concomitant]
  16. METHYLPREDNISOLONE [Concomitant]
  17. MICAFUNGIN [Concomitant]
  18. ONDANESTRON [Concomitant]
  19. PANTOPRAZOLE SODIUM [Concomitant]
  20. POSACONAZOLE [Concomitant]
  21. PREDNISONE 50MG TAB [Concomitant]
  22. ROUVASTATIN [Concomitant]

REACTIONS (1)
  - NEPHROPATHY TOXIC [None]
